FAERS Safety Report 8923003 (Version 1)
Quarter: 2012Q4

REPORT INFORMATION
  Report Type: 
  Country: DZ (occurrence: DZ)
  Receive Date: 20121123
  Receipt Date: 20121123
  Transmission Date: 20130627
  Serious: Yes (Hospitalization)
  Sender: FDA-Public Use
  Company Number: DZ-ROCHE-1158000

PATIENT
  Age: 47 Year
  Sex: Male

DRUGS (2)
  1. AVASTIN [Suspect]
     Indication: AGE-RELATED MACULAR DEGENERATION
     Route: 050
     Dates: start: 20120707, end: 20120707
  2. AVASTIN [Suspect]
     Indication: OFF LABEL USE

REACTIONS (3)
  - Visual acuity reduced [Unknown]
  - Headache [Recovered/Resolved]
  - Eye pain [Recovered/Resolved]
